FAERS Safety Report 25016828 (Version 1)
Quarter: 2025Q1

REPORT INFORMATION
  Report Type: Spontaneous
  Country: US (occurrence: US)
  Receive Date: 20250227
  Receipt Date: 20250227
  Transmission Date: 20250408
  Serious: No
  Sender: UCB
  Company Number: US-UCBSA-2024037999

PATIENT
  Age: 41 Year
  Sex: Male

DRUGS (7)
  1. LEVETIRACETAM [Suspect]
     Active Substance: LEVETIRACETAM
     Indication: Alcoholic seizure
     Dosage: 500 MILLIGRAM, 2X/DAY (BID)
     Route: 048
  2. LEVETIRACETAM [Suspect]
     Active Substance: LEVETIRACETAM
     Indication: Off label use
  3. CLONAZEPAM [Concomitant]
     Active Substance: CLONAZEPAM
     Indication: Post-anoxic myoclonus
     Dosage: 0.5 MILLIGRAM, 2X/DAY (BID)
     Route: 048
  4. CLONAZEPAM [Concomitant]
     Active Substance: CLONAZEPAM
     Indication: Alcoholic seizure
  5. VALPROATE [Concomitant]
     Active Substance: VALPROIC ACID
     Indication: Post-anoxic myoclonus
     Dosage: 500 MILLIGRAM, 2X/DAY (BID) DELAYED RELEASE
     Route: 048
  6. VALPROATE [Concomitant]
     Active Substance: VALPROIC ACID
     Indication: Alcoholic seizure
  7. GABAPENTIN [Concomitant]
     Active Substance: GABAPENTIN
     Indication: Alcoholic seizure
     Dosage: 400 MILLIGRAM, 3X/DAY (TID)
     Route: 048

REACTIONS (1)
  - No adverse event [Unknown]
